FAERS Safety Report 7764855-5 (Version None)
Quarter: 2011Q3

REPORT INFORMATION
  Report Type: 
  Country: None (occurrence: None)
  Receive Date: 20110921
  Receipt Date: 20110919
  Transmission Date: 20111222
  Serious: Yes (Hospitalization, Other)
  Sender: FDA-Public Use
  Company Number: US-PFIZER INC-2011177833

PATIENT
  Sex: Female
  Weight: 86.168 kg

DRUGS (13)
  1. CLINORIL [Concomitant]
     Indication: OSTEOARTHRITIS
     Dosage: UNK
  2. VITAMIN D [Concomitant]
     Dosage: 1000 IU, UNK
  3. PREMARIN [Concomitant]
     Dosage: UNK, 4X/DAY
     Route: 067
  4. TRAZODONE [Concomitant]
     Dosage: 175 MG, 1X/DAY
  5. ASCORBIC ACID [Concomitant]
     Dosage: 1000 IU, UNK
  6. CELEBREX [Suspect]
     Indication: ARTHRITIS
     Dosage: 100 MG, 2X/DAY
     Route: 048
     Dates: start: 19810101
  7. ASPIRIN [Concomitant]
     Dosage: UNK
  8. CRESTOR [Concomitant]
     Dosage: 20 MG, 1X/DAY
  9. VITAMIN E [Concomitant]
     Dosage: 1000 IU, UNK
  10. CYMBALTA [Concomitant]
     Dosage: 60 MG, 1X/DAY
  11. NEXIUM [Concomitant]
     Dosage: UNK, 1X/DAY
  12. CALCIUM [Concomitant]
     Dosage: 330 MG, 2X/DAY
  13. MULTI-VITAMINS [Concomitant]
     Dosage: UNK

REACTIONS (2)
  - ELECTROLYTE IMBALANCE [None]
  - PNEUMONIA [None]
